FAERS Safety Report 20113873 (Version 2)
Quarter: 2022Q1

REPORT INFORMATION
  Report Type: Spontaneous
  Country: BR (occurrence: BR)
  Receive Date: 20211125
  Receipt Date: 20220310
  Transmission Date: 20220423
  Serious: Yes (Other)
  Sender: FDA-Public Use
  Company Number: BR-NOVARTISPH-NVSC2021BR268390

PATIENT
  Sex: Female

DRUGS (1)
  1. FEMARA [Suspect]
     Active Substance: LETROZOLE
     Indication: Breast cancer
     Dosage: 1 DF, QD (2.5 OT) (2,5 C 28)
     Route: 065

REACTIONS (4)
  - Immunodeficiency [Unknown]
  - Pain [Unknown]
  - Herpes zoster [Unknown]
  - Headache [Not Recovered/Not Resolved]
